FAERS Safety Report 9241505 (Version 3)
Quarter: 2013Q2

REPORT INFORMATION
  Report Type: Spontaneous
  Country: US (occurrence: US)
  Receive Date: 20130419
  Receipt Date: 20130513
  Transmission Date: 20140414
  Serious: No
  Sender: FDA-Public Use
  Company Number: US-009507513-1304USA007627

PATIENT
  Sex: Female
  Weight: 102.49 kg

DRUGS (1)
  1. ASMANEX TWISTHALER [Suspect]
     Dosage: ONE TO TWO INHALATIONS, QD
     Route: 048
     Dates: start: 20130404

REACTIONS (3)
  - Drug dose omission [Unknown]
  - No adverse event [Unknown]
  - Product quality issue [Unknown]
